FAERS Safety Report 4876202-7 (Version None)
Quarter: 2006Q1

REPORT INFORMATION
  Report Type: 
  Country: None (occurrence: None)
  Receive Date: 20060110
  Receipt Date: 20060104
  Transmission Date: 20060701
  Serious: Yes (Hospitalization)
  Sender: FDA-Public Use
  Company Number: US-JNJFOC-20051003787

PATIENT
  Age: 14 Month
  Sex: Female

DRUGS (4)
  1. CONCENTRATED MOTRIN INFANTS' [Suspect]
  2. CONCENTRATED MOTRIN INFANTS' [Suspect]
     Indication: TEETHING
     Dosage: 2-3 DOSES ON + OFF
  3. SEPTRA [Concomitant]
  4. SEPTRA [Concomitant]

REACTIONS (2)
  - IMPAIRED HEALING [None]
  - POST PROCEDURAL URINE LEAK [None]
